FAERS Safety Report 21345171 (Version 2)
Quarter: 2022Q4

REPORT INFORMATION
  Report Type: Report from Study
  Country: SG (occurrence: SG)
  Receive Date: 20220916
  Receipt Date: 20221007
  Transmission Date: 20230113
  Serious: Yes (Hospitalization)
  Sender: FDA-Public Use
  Company Number: SG-SEATTLE GENETICS-2022SGN08588

PATIENT
  Age: 62 Year
  Sex: Female
  Weight: 61.9 kg

DRUGS (1)
  1. TISOTUMAB VEDOTIN [Suspect]
     Active Substance: TISOTUMAB VEDOTIN
     Indication: Cervix carcinoma recurrent
     Dosage: 2 MG/KG, Q21D
     Route: 042
     Dates: start: 20220825

REACTIONS (2)
  - Abdominal distension [Recovered/Resolved with Sequelae]
  - Blepharitis [Recovered/Resolved]

NARRATIVE: CASE EVENT DATE: 20220826
